FAERS Safety Report 12539350 (Version 1)
Quarter: 2016Q3

REPORT INFORMATION
  Report Type: Spontaneous
  Country: US (occurrence: US)
  Receive Date: 20160708
  Receipt Date: 20160708
  Transmission Date: 20161109
  Serious: No
  Sender: FDA-Public Use
  Company Number: US-BAYER-2016-126064

PATIENT
  Age: 86 Year
  Sex: Female
  Weight: 45.81 kg

DRUGS (1)
  1. CLARITIN [Suspect]
     Active Substance: LORATADINE
     Indication: SEASONAL ALLERGY
     Dosage: UNK

REACTIONS (4)
  - Movement disorder [None]
  - Cough [None]
  - Dizziness [None]
  - Product use issue [None]
